FAERS Safety Report 9439758 (Version 3)
Quarter: 2013Q4

REPORT INFORMATION
  Report Type: Spontaneous
  Country: GB (occurrence: GB)
  Receive Date: 20130805
  Receipt Date: 20131016
  Transmission Date: 20140711
  Serious: Yes (Hospitalization, Disabling)
  Sender: FDA-Public Use
  Company Number: GB-US-EMD SERONO, INC.-7227206

PATIENT
  Age: 11 Year
  Sex: Female
  Weight: 53 kg

DRUGS (1)
  1. SAIZEN [Suspect]
     Indication: TURNER^S SYNDROME
     Route: 058
     Dates: start: 201301, end: 20130712

REACTIONS (1)
  - Brain neoplasm [Recovering/Resolving]
